FAERS Safety Report 10034043 (Version 1)
Quarter: 2014Q1

REPORT INFORMATION
  Report Type: Spontaneous
  Country: US (occurrence: None)
  Receive Date: 20140324
  Receipt Date: 20140324
  Transmission Date: 20141002
  Serious: Yes (Hospitalization)
  Sender: FDA-Public Use
  Company Number: None

PATIENT
  Age: 30 Year
  Sex: Female
  Weight: 67.6 kg

DRUGS (4)
  1. RAD001 [Suspect]
     Indication: MYCOSIS FUNGOIDES
     Route: 048
     Dates: start: 20140219, end: 20140302
  2. RAD001 [Suspect]
     Indication: LYMPHOMA
     Route: 048
     Dates: start: 20140219, end: 20140302
  3. REVLIMID [Suspect]
     Indication: MYCOSIS FUNGOIDES
     Route: 048
     Dates: start: 20140219, end: 20140302
  4. REVLIMID [Suspect]
     Indication: LYMPHOMA
     Route: 048
     Dates: start: 20140219, end: 20140302

REACTIONS (6)
  - Dyspnoea [None]
  - Dehydration [None]
  - Pyrexia [None]
  - Pneumonitis [None]
  - Diarrhoea [None]
  - Platelet count decreased [None]
